FAERS Safety Report 23889188 (Version 1)
Quarter: 2024Q2

REPORT INFORMATION
  Report Type: Spontaneous
  Country: US (occurrence: US)
  Receive Date: 20240523
  Receipt Date: 20240523
  Transmission Date: 20240715
  Serious: No
  Sender: FDA-Public Use
  Company Number: US-009507513-2405USA004977

PATIENT
  Age: 83 Year
  Sex: Male

DRUGS (6)
  1. CANCIDAS [Suspect]
     Active Substance: CASPOFUNGIN ACETATE
     Indication: Gastritis bacterial
  2. CANCIDAS [Suspect]
     Active Substance: CASPOFUNGIN ACETATE
     Indication: Portal venous gas
  3. CUBICIN [Concomitant]
     Active Substance: DAPTOMYCIN
     Indication: Gastritis bacterial
  4. CUBICIN [Concomitant]
     Active Substance: DAPTOMYCIN
     Indication: Portal venous gas
  5. ZOSYN [Concomitant]
     Active Substance: PIPERACILLIN SODIUM\TAZOBACTAM SODIUM
     Indication: Gastritis bacterial
  6. ZOSYN [Concomitant]
     Active Substance: PIPERACILLIN SODIUM\TAZOBACTAM SODIUM
     Indication: Portal venous gas

REACTIONS (1)
  - Product use in unapproved indication [Unknown]
